FAERS Safety Report 8308785-9 (Version None)
Quarter: 2012Q2

REPORT INFORMATION
  Report Type: 
  Country: None (occurrence: None)
  Receive Date: 20120424
  Receipt Date: 20120420
  Transmission Date: 20120825
  Serious: No
  Sender: FDA-Public Use
  Company Number: US-BAYER-2012-039892

PATIENT
  Age: 43 Year
  Sex: Male
  Weight: 86 kg

DRUGS (6)
  1. ALEVE (CAPLET) [Suspect]
     Indication: PRODUCT USED FOR UNKNOWN INDICATION
  2. ASPIRIN [Concomitant]
  3. PLAVIX [Concomitant]
  4. LISINOPRIL [Concomitant]
  5. CRESTOR [Concomitant]
  6. METOPROLOL TARTRATE [Concomitant]

REACTIONS (1)
  - GOUT [None]
